FAERS Safety Report 11116971 (Version 1)
Quarter: 2015Q2

REPORT INFORMATION
  Report Type: Spontaneous
  Country: AU (occurrence: AU)
  Receive Date: 20150515
  Receipt Date: 20150515
  Transmission Date: 20150821
  Serious: Yes (Other)
  Sender: FDA-Public Use
  Company Number: AU-BAUSCH-BL-2015-012601

PATIENT
  Sex: Male

DRUGS (1)
  1. METRONIDAZOLE. [Suspect]
     Active Substance: METRONIDAZOLE
     Indication: PRODUCT USED FOR UNKNOWN INDICATION
     Route: 065

REACTIONS (6)
  - Coagulopathy [Unknown]
  - Presyncope [Unknown]
  - Hypokalaemia [Unknown]
  - Hyponatraemia [Unknown]
  - Swollen tongue [Unknown]
  - Tongue haemorrhage [Unknown]
